FAERS Safety Report 8514868-0 (Version None)
Quarter: 2012Q3

REPORT INFORMATION
  Report Type: 
  Country: None (occurrence: None)
  Receive Date: 20120711
  Receipt Date: 20120711
  Transmission Date: 20120928
  Serious: Yes (Hospitalization)
  Sender: FDA-Public Use
  Company Number: None

PATIENT
  Age: 63 Year
  Sex: Male
  Weight: 63.6 kg

DRUGS (1)
  1. NORTRIPTYLINE HCL [Suspect]
     Indication: DEPRESSION
     Dosage: 25 MG AT BEDTIME PO
     Route: 048
     Dates: start: 20120605

REACTIONS (5)
  - ORTHOSTATIC HYPOTENSION [None]
  - LACERATION [None]
  - JAW FRACTURE [None]
  - LOSS OF CONSCIOUSNESS [None]
  - SYNCOPE [None]
